FAERS Safety Report 6611909-2 (Version None)
Quarter: 2010Q1

REPORT INFORMATION
  Report Type: 
  Country: None (occurrence: None)
  Receive Date: 20100226
  Receipt Date: 20100226
  Transmission Date: 20100710
  Serious: Yes (Other)
  Sender: FDA-Public Use
  Company Number: None

PATIENT
  Age: 47 Year
  Sex: Male
  Weight: 72.7 kg

DRUGS (2)
  1. LYRICA [Suspect]
     Indication: OFF LABEL USE
     Dosage: 150 MG Q.H.S. P.O.
     Route: 048
  2. LYRICA [Suspect]
     Indication: RESTLESS LEGS SYNDROME
     Dosage: 150 MG Q.H.S. P.O.
     Route: 048

REACTIONS (1)
  - ARTHRALGIA [None]
